FAERS Safety Report 6895079-1 (Version None)
Quarter: 2010Q3

REPORT INFORMATION
  Report Type: 
  Country: None (occurrence: None)
  Receive Date: 20100802
  Receipt Date: 20100720
  Transmission Date: 20110219
  Serious: Yes (Other)
  Sender: FDA-Public Use
  Company Number: US-JNJFOC-20100708805

PATIENT
  Age: 37 Year
  Sex: Male

DRUGS (10)
  1. LEVOFLOXACIN [Suspect]
     Indication: PRODUCT USED FOR UNKNOWN INDICATION
     Route: 065
  2. CEFEPIME [Suspect]
     Indication: PRODUCT USED FOR UNKNOWN INDICATION
     Route: 065
  3. VANCOMYCIN [Suspect]
     Indication: PRODUCT USED FOR UNKNOWN INDICATION
     Route: 065
  4. CLINDAMYCIN [Suspect]
     Indication: PRODUCT USED FOR UNKNOWN INDICATION
     Route: 065
  5. CEPHALEXIN [Suspect]
     Indication: ERYTHEMA
     Route: 065
  6. CEPHALEXIN [Suspect]
     Indication: LOCAL SWELLING
     Route: 065
  7. CEPHALEXIN [Suspect]
     Indication: OROPHARYNGEAL PAIN
     Route: 065
  8. STEROIDS NOS [Suspect]
     Indication: ERYTHEMA
     Route: 065
  9. STEROIDS NOS [Suspect]
     Indication: OROPHARYNGEAL PAIN
     Route: 065
  10. STEROIDS NOS [Suspect]
     Indication: LOCAL SWELLING
     Route: 065

REACTIONS (2)
  - PYREXIA [None]
  - SEPSIS [None]
